FAERS Safety Report 12238969 (Version 1)
Quarter: 2016Q2

REPORT INFORMATION
  Report Type: Spontaneous
  Country: US (occurrence: US)
  Receive Date: 20160405
  Receipt Date: 20160405
  Transmission Date: 20160815
  Serious: Yes (Other)
  Sender: FDA-Public Use
  Company Number: US-JNJFOC-20160328113

PATIENT

DRUGS (5)
  1. IFOSFAMIDE. [Suspect]
     Active Substance: IFOSFAMIDE
     Indication: SOFT TISSUE SARCOMA
     Dosage: ON DAYS 1 AND 2
     Route: 065
  2. MITOMYCIN. [Suspect]
     Active Substance: MITOMYCIN
     Indication: SOFT TISSUE SARCOMA
     Dosage: ONN DAY 2
     Route: 065
  3. DOXORUBICIN HYDROCHLORIDE. [Suspect]
     Active Substance: DOXORUBICIN HYDROCHLORIDE
     Indication: SOFT TISSUE SARCOMA
     Dosage: ON DAY 2
     Route: 065
  4. CISPLATIN. [Suspect]
     Active Substance: CISPLATIN
     Indication: SOFT TISSUE SARCOMA
     Dosage: ON DAY 2
     Route: 065
  5. GRANULOCYTE MACROPHAGE COLONY STIM FACTOR [Suspect]
     Active Substance: GRANULOCYTE-MACROPHAGE COLONY-STIMULATING FACTOR
     Indication: SOFT TISSUE SARCOMA
     Dosage: TWICE DAILY, BEGINNING 6 DAYS BEFORE CHEMOTHERAPY AND CONTINUING FOR 4 DAYS
     Route: 058

REACTIONS (41)
  - Neutropenia [Unknown]
  - Muscular weakness [Unknown]
  - Dyspepsia [Unknown]
  - Insomnia [Unknown]
  - Dizziness [Unknown]
  - Hyponatraemia [Unknown]
  - Vomiting [Unknown]
  - Dyspnoea [Unknown]
  - Fatigue [Unknown]
  - Hypokalaemia [Unknown]
  - Thrombocytopenia [Unknown]
  - Nausea [Unknown]
  - Dehydration [Unknown]
  - Hypotension [Unknown]
  - Syncope [Unknown]
  - Constipation [Unknown]
  - Leukopenia [Unknown]
  - Confusional state [Unknown]
  - Nervous system disorder [Unknown]
  - Off label use [Unknown]
  - Aphasia [Unknown]
  - Pneumonitis [Unknown]
  - Presyncope [Unknown]
  - Transfusion [Unknown]
  - Febrile neutropenia [Unknown]
  - Product use issue [Unknown]
  - Decreased appetite [Unknown]
  - Cerebral ischaemia [Unknown]
  - Thrombosis [Unknown]
  - Tumour pain [Unknown]
  - Wound [Unknown]
  - Myalgia [Unknown]
  - Pleuritic pain [Unknown]
  - Stomatitis [Unknown]
  - Infection [Unknown]
  - Aspartate aminotransferase abnormal [Unknown]
  - Anal fistula [Unknown]
  - Cough [Unknown]
  - Arthralgia [Unknown]
  - Anaemia [Unknown]
  - Hypersensitivity [Unknown]
